FAERS Safety Report 12134741 (Version 1)
Quarter: 2016Q1

REPORT INFORMATION
  Report Type: Spontaneous
  Country: FR (occurrence: FR)
  Receive Date: 20160301
  Receipt Date: 20160301
  Transmission Date: 20160526
  Serious: Yes (Hospitalization, Disabling, Other)
  Sender: FDA-Public Use
  Company Number: FR-ELI_LILLY_AND_COMPANY-FR201602006375

PATIENT
  Age: 78 Year
  Sex: Female

DRUGS (4)
  1. MABTHERA [Suspect]
     Active Substance: RITUXIMAB
     Indication: B-CELL LYMPHOMA STAGE III
     Dosage: 500 MG, CYCLICAL
     Route: 042
     Dates: start: 20150814, end: 20151126
  2. GEMZAR [Suspect]
     Active Substance: GEMCITABINE HYDROCHLORIDE
     Indication: B-CELL LYMPHOMA STAGE III
     Dosage: 1350 MG, CYCLICAL
     Route: 042
     Dates: start: 20150819, end: 20151005
  3. OXALIPLATINE HOSPIRA [Suspect]
     Active Substance: OXALIPLATIN
     Indication: B-CELL LYMPHOMA STAGE III
     Dosage: 135 MG, CYCLICAL
     Route: 042
     Dates: start: 20150819, end: 20151005
  4. METHOTREXATE BIODIM [Suspect]
     Active Substance: METHOTREXATE
     Indication: B-CELL LYMPHOMA STAGE III
     Dosage: 15 MG, CYCLICAL
     Route: 037
     Dates: start: 20150819, end: 20151005

REACTIONS (6)
  - Axonal neuropathy [Not Recovered/Not Resolved]
  - Sepsis [Unknown]
  - Leukoencephalopathy [Not Recovered/Not Resolved]
  - Enterobacter infection [Unknown]
  - Cerebellar syndrome [Not Recovered/Not Resolved]
  - Off label use [Recovered/Resolved]

NARRATIVE: CASE EVENT DATE: 201509
